FAERS Safety Report 9558802 (Version 3)
Quarter: 2014Q1

REPORT INFORMATION
  Report Type: Report from Study
  Country: US (occurrence: US)
  Receive Date: 20130926
  Receipt Date: 20140220
  Transmission Date: 20141002
  Serious: Yes (Other)
  Sender: FDA-Public Use
  Company Number: US-ROCHE-1279291

PATIENT
  Age: 46 Year
  Sex: Female

DRUGS (22)
  1. XOLAIR [Suspect]
     Indication: ASTHMA
     Dosage: SQ EVERY WKS STARTED IN 2004
     Route: 058
     Dates: start: 2004, end: 201202
  2. XOLAIR [Suspect]
     Indication: BRONCHIAL HYPERREACTIVITY
  3. XOLAIR [Suspect]
     Indication: RHINITIS ALLERGIC
  4. XOLAIR [Suspect]
     Indication: CHRONIC OBSTRUCTIVE PULMONARY DISEASE
  5. XOLAIR [Suspect]
     Indication: HYPERSENSITIVITY
  6. METFORMIN [Concomitant]
     Route: 048
  7. ADVAIR DISKUS [Concomitant]
     Dosage: 500/50MCG PER DOSE 1 PUFF BID (AM/PM)
     Route: 065
  8. ASPIRIN [Concomitant]
     Route: 048
  9. CLONIDINE [Concomitant]
     Route: 048
  10. FLOVENT HFA [Concomitant]
     Dosage: 2 PUFF X 30DAYS
     Route: 065
     Dates: start: 20120927
  11. LASIX [Concomitant]
     Route: 048
  12. LISINOPRIL [Concomitant]
     Route: 048
  13. LISINOPRIL [Concomitant]
     Route: 048
  14. LORATADINE [Concomitant]
     Route: 048
  15. NUVIGIL [Concomitant]
     Route: 048
  16. POTASSIUM CHLORIDE [Concomitant]
     Dosage: 20 MEQ
     Route: 048
  17. SINGULAR [Concomitant]
     Route: 048
     Dates: start: 20120927
  18. THEOPHYLLINE [Concomitant]
     Route: 048
     Dates: start: 20130429
  19. TRAMADOL [Concomitant]
     Route: 048
  20. VENTOLIN HFA [Concomitant]
     Route: 065
  21. VITAMIN D3 [Concomitant]
     Dosage: 1000 UNITS
     Route: 048
  22. CPAP [Concomitant]
     Dosage: 11 CM WATER
     Route: 065

REACTIONS (22)
  - Pulmonary hypertension [Unknown]
  - Prolactinoma [Unknown]
  - Asthma [Unknown]
  - Sinusitis [Unknown]
  - Dyspnoea [Unknown]
  - Dyspnoea [Unknown]
  - Wheezing [Unknown]
  - Arthralgia [Unknown]
  - Insomnia [Unknown]
  - Interstitial lung disease [Unknown]
  - Immunoglobulins increased [Unknown]
  - Obesity [Unknown]
  - Cardiovascular deconditioning [Unknown]
  - Osteoarthritis [Unknown]
  - Acute sinusitis [Unknown]
  - Vitamin D deficiency [Unknown]
  - Snoring [Unknown]
  - Bronchial hyperreactivity [Unknown]
  - Insomnia [Unknown]
  - Breath sounds abnormal [Unknown]
  - Narcolepsy [Unknown]
  - Sarcoidosis [Unknown]
